FAERS Safety Report 12277488 (Version 1)
Quarter: 2016Q2

REPORT INFORMATION
  Report Type: Spontaneous
  Country: BR (occurrence: BR)
  Receive Date: 20160413
  Receipt Date: 20160413
  Transmission Date: 20160815
  Serious: Yes (Hospitalization)
  Sender: FDA-Public Use
  Company Number: BR-TORRENT-00003368

PATIENT
  Age: 78 Year
  Sex: Female

DRUGS (7)
  1. MENELAT [Suspect]
     Active Substance: MIRTAZAPINE
     Indication: SLEEP DISORDER THERAPY
     Dosage: ONCE DAILY/ ORAL
     Route: 048
     Dates: start: 201511
  2. EPEZ [Suspect]
     Active Substance: DONEPEZIL HYDROCHLORIDE
     Indication: AGGRESSION
     Dosage: EPEZ 5 MG TWO TABLETS DAILY/ ORAL
     Route: 048
     Dates: start: 2015
  3. AAS [Concomitant]
     Active Substance: ASPIRIN
     Indication: ANTIPLATELET THERAPY
     Dosage: ONCE DAILY/ ORAL
     Route: 048
  4. AROVIT [Concomitant]
     Indication: PRODUCT USED FOR UNKNOWN INDICATION
     Dosage: ONCE DAILY/ ORAL
     Route: 048
  5. STABIL [Concomitant]
     Active Substance: PRAMIPEXOLE DIHYDROCHLORIDE
     Indication: PARKINSON^S DISEASE
     Dosage: STABIL 0.25 MG TWICE DAILY/ ORAL
     Route: 048
     Dates: start: 2015
  6. ROSUVASTATIN. [Concomitant]
     Active Substance: ROSUVASTATIN
     Indication: MINERAL SUPPLEMENTATION
     Dosage: ONCE DAILY/ ORAL
     Route: 048
     Dates: start: 2013
  7. EXELON [Concomitant]
     Active Substance: RIVASTIGMINE TARTRATE
     Indication: PARKINSON^S DISEASE
     Dosage: DOSE NUMBER IS UNKNOWN/ HALF OF A TABLET DAILY/ ORAL
     Route: 048
     Dates: start: 201601

REACTIONS (7)
  - Off label use [Recovered/Resolved]
  - Drug ineffective [Recovered/Resolved]
  - Off label use [Not Recovered/Not Resolved]
  - Malaise [Not Recovered/Not Resolved]
  - Wrong technique in product usage process [Recovered/Resolved]
  - Circadian rhythm sleep disorder [Not Recovered/Not Resolved]
  - Sedation [Recovered/Resolved]

NARRATIVE: CASE EVENT DATE: 2015
